FAERS Safety Report 6618443-4 (Version None)
Quarter: 2010Q1

REPORT INFORMATION
  Report Type: 
  Country: None (occurrence: None)
  Receive Date: 20100308
  Receipt Date: 20100302
  Transmission Date: 20100710
  Serious: Yes (Death, Hospitalization)
  Sender: FDA-Public Use
  Company Number: DE-JNJFOC-20091105626

PATIENT
  Age: 67 Year
  Sex: Female
  Weight: 99 kg

DRUGS (16)
  1. CAELYX [Suspect]
     Indication: OVARIAN CANCER
     Route: 042
  2. CAELYX [Suspect]
     Route: 042
  3. CAELYX [Suspect]
     Indication: BREAST CANCER
     Route: 042
  4. CAELYX [Suspect]
     Route: 042
  5. CARBOPLATIN [Suspect]
     Indication: BREAST CANCER
     Route: 065
  6. ZOFRAN [Concomitant]
     Route: 065
  7. DEXAMETHASONE [Concomitant]
     Route: 065
  8. METOCLOPRAMIDE HYDROCHLORIDE [Concomitant]
     Route: 065
  9. NOVODIGAL [Concomitant]
  10. CONCOR [Concomitant]
     Route: 065
  11. RAMIPRIL [Concomitant]
     Route: 065
  12. ZOPICLONE [Concomitant]
     Route: 065
  13. FUROSEMIDE [Concomitant]
     Dosage: 40
     Route: 065
  14. NEUPOGEN [Concomitant]
     Dosage: 48
     Route: 065
  15. TAZOBACTAM [Concomitant]
     Route: 065
  16. CIPROFLOXACIN [Concomitant]
     Route: 065

REACTIONS (5)
  - COAGULOPATHY [None]
  - PALMAR-PLANTAR ERYTHRODYSAESTHESIA SYNDROME [None]
  - PANCYTOPENIA [None]
  - RASH [None]
  - SUBDURAL HAEMATOMA [None]
